FAERS Safety Report 12535710 (Version 1)
Quarter: 2016Q3

REPORT INFORMATION
  Report Type: Spontaneous
  Country: US (occurrence: None)
  Receive Date: 20160706
  Receipt Date: 20160706
  Transmission Date: 20161109
  Serious: Yes (Disabling)
  Sender: FDA-Public Use
  Company Number: None

PATIENT
  Age: 61 Year
  Sex: Female
  Weight: 55.34 kg

DRUGS (6)
  1. ATORVASTATIN CALCIUM, 10 MG [Suspect]
     Active Substance: ATORVASTATIN CALCIUM
     Indication: BLOOD CHOLESTEROL INCREASED
     Route: 048
     Dates: start: 20120201, end: 20160609
  2. ACETAMINOPHEN. [Concomitant]
     Active Substance: ACETAMINOPHEN
  3. PROGESTERONE/HRT [Concomitant]
  4. LEVOXYL [Concomitant]
     Active Substance: LEVOTHYROXINE SODIUM
  5. ASPIRIN. [Concomitant]
     Active Substance: ASPIRIN
  6. VITAMIN D [Concomitant]
     Active Substance: CHOLECALCIFEROL

REACTIONS (13)
  - Hypoaesthesia [None]
  - Asthenia [None]
  - Disturbance in attention [None]
  - Fall [None]
  - Dyspnoea [None]
  - Muscle spasms [None]
  - Discomfort [None]
  - Muscle disorder [None]
  - Herpes zoster [None]
  - Back pain [None]
  - Fatigue [None]
  - Neck pain [None]
  - Pain [None]

NARRATIVE: CASE EVENT DATE: 20120201
